FAERS Safety Report 5876361-3 (Version None)
Quarter: 2008Q3

REPORT INFORMATION
  Report Type: 
  Country: None (occurrence: None)
  Receive Date: 20080910
  Receipt Date: 20080904
  Transmission Date: 20090109
  Serious: Yes (Other)
  Sender: FDA-Public Use
  Company Number: CA-BAYER-200813894NA

PATIENT
  Age: 19 Year
  Sex: Female

DRUGS (2)
  1. YASMIN [Suspect]
     Dosage: TOTAL DAILY DOSE: 1 DF
     Route: 048
     Dates: start: 20080101
  2. EPIVAL [Concomitant]
     Indication: CONVULSION
     Route: 048

REACTIONS (2)
  - CONVULSION [None]
  - VOMITING [None]
